FAERS Safety Report 13297253 (Version 1)
Quarter: 2017Q1

REPORT INFORMATION
  Report Type: Spontaneous
  Country: US (occurrence: US)
  Receive Date: 20170303
  Receipt Date: 20170303
  Transmission Date: 20170428
  Serious: No
  Sender: FDA-Public Use
  Company Number: None

PATIENT
  Age: 73 Year
  Sex: Male
  Weight: 101.2 kg

DRUGS (1)
  1. CLOBETASOL [Suspect]
     Active Substance: CLOBETASOL
     Indication: SKIN IRRITATION
     Route: 061

REACTIONS (2)
  - Product preparation error [None]
  - Drug dispensing error [None]

NARRATIVE: CASE EVENT DATE: 20170220
